FAERS Safety Report 4513035-5 (Version None)
Quarter: 2004Q4

REPORT INFORMATION
  Report Type: 
  Country: None (occurrence: None)
  Receive Date: 20041124
  Receipt Date: 20041109
  Transmission Date: 20050328
  Serious: Yes (Other)
  Sender: FDA-Public Use
  Company Number: 2000570

PATIENT
  Age: 73 Year
  Sex: Male
  Weight: 84 kg

DRUGS (19)
  1. KEPPRA [Suspect]
     Indication: CONVULSION
     Dosage: 500 MG 2/D PO
     Route: 048
     Dates: start: 20001024
  2. ALLOPURINOL [Suspect]
     Dosage: 300 MG/D PO
     Route: 048
     Dates: end: 20020101
  3. MONOPRIL [Concomitant]
  4. ATENOLOL [Concomitant]
  5. ASPIRIN [Concomitant]
  6. FLONASE [Concomitant]
  7. VIOXX [Concomitant]
  8. TRICOR [Concomitant]
  9. METAMUCIL-2 [Concomitant]
  10. VITAMIN E [Concomitant]
  11. VITAMIN B-12 [Concomitant]
  12. VITAMIN C [Concomitant]
  13. FLOMAX [Concomitant]
  14. ASACOL [Concomitant]
  15. NEXIUM [Concomitant]
  16. PREVACID [Concomitant]
  17. PRILOSEC [Concomitant]
  18. DILANTIN [Concomitant]
  19. PHENOBARBITAL TAB [Concomitant]

REACTIONS (5)
  - CHOLANGITIS SCLEROSING [None]
  - HEPATIC FIBROSIS [None]
  - HEPATIC STEATOSIS [None]
  - HEPATOTOXICITY [None]
  - MEDICATION ERROR [None]
